FAERS Safety Report 11318548 (Version 1)
Quarter: 2015Q3

REPORT INFORMATION
  Report Type: Spontaneous
  Country: US (occurrence: US)
  Receive Date: 20150729
  Receipt Date: 20150729
  Transmission Date: 20151125
  Serious: No
  Sender: FDA-Public Use
  Company Number: US-ASTRAZENECA-2015SE70525

PATIENT
  Age: 23714 Day
  Sex: Female
  Weight: 127 kg

DRUGS (8)
  1. PRILOSEC [Suspect]
     Active Substance: OMEPRAZOLE MAGNESIUM
     Indication: GASTROOESOPHAGEAL REFLUX DISEASE
     Dosage: 10MG DAILY AND ANOTHER 10 MG DOSE LATER IN THE DAY AS NEEDED
     Route: 048
     Dates: start: 2010
  2. NAPROXEN. [Concomitant]
     Active Substance: NAPROXEN
     Indication: INFLAMMATION
     Dosage: 500 MG AS REQUIRED; 3 TIMES DAILY
     Route: 048
     Dates: start: 1985
  3. ARMOUR THYROID [Concomitant]
     Active Substance: THYROID, PORCINE\THYROID, UNSPECIFIED
     Indication: THYROID DISORDER
     Route: 048
     Dates: start: 1995, end: 2015
  4. ALBUTEROL NEBULIZER [Concomitant]
     Active Substance: ALBUTEROL
     Indication: ASTHMA
     Dosage: AS REQUIRED
     Route: 055
     Dates: start: 1995
  5. PROAIR HFA [Concomitant]
     Active Substance: ALBUTEROL SULFATE
     Indication: ASTHMA
     Dosage: 6 AS REQUIRED
     Route: 055
  6. NAPROXEN. [Concomitant]
     Active Substance: NAPROXEN
     Indication: ARTHRITIS
     Dosage: 500 MG AS REQUIRED; 3 TIMES DAILY
     Route: 048
     Dates: start: 1985
  7. NAPROXEN. [Concomitant]
     Active Substance: NAPROXEN
     Indication: INFLAMMATION
     Dosage: 500 MG AS REQUIRED; 3 TIMES DAILY
     Route: 048
     Dates: start: 1985
  8. PRILOSEC [Suspect]
     Active Substance: OMEPRAZOLE MAGNESIUM
     Indication: GASTROOESOPHAGEAL REFLUX DISEASE
     Route: 048
     Dates: start: 1985, end: 2010

REACTIONS (6)
  - Gastrooesophageal reflux disease [Unknown]
  - Off label use [Unknown]
  - Visual acuity reduced [Unknown]
  - Nausea [Unknown]
  - Drug dose omission [Unknown]
  - Dyspepsia [Unknown]

NARRATIVE: CASE EVENT DATE: 20150709
